FAERS Safety Report 18684673 (Version 3)
Quarter: 2021Q2

REPORT INFORMATION
  Report Type: Spontaneous
  Country: US (occurrence: US)
  Receive Date: 20201230
  Receipt Date: 20210630
  Transmission Date: 20210717
  Serious: Yes (Other)
  Sender: FDA-Public Use
  Company Number: US-INDIVIOR US-INDV-126678-2020

PATIENT

DRUGS (4)
  1. GABAPENTIN. [Concomitant]
     Active Substance: GABAPENTIN
     Indication: PRODUCT USED FOR UNKNOWN INDICATION
     Dosage: 600 MILLIGRAM, QID
     Route: 065
     Dates: start: 2020
  2. BUPRENORPHINE/NALOXONE [Suspect]
     Active Substance: BUPRENORPHINE\NALOXONE
     Indication: DRUG USE DISORDER
     Dosage: 24 MILLIGRAM, QD
     Route: 065
  3. SUBLOCADE [Suspect]
     Active Substance: BUPRENORPHINE
     Indication: DRUG DEPENDENCE
     Dosage: 300 MILLIGRAM, QMO
     Route: 023
     Dates: start: 20200930
  4. BUPRENORPHINE/NALOXONE [Suspect]
     Active Substance: BUPRENORPHINE\NALOXONE
     Dosage: 16 MILLIGRAM, QD (TAPERED DOSE)
     Route: 065
     Dates: end: 2020

REACTIONS (7)
  - Injection site scar [Unknown]
  - Drug delivery system removal [Recovered/Resolved]
  - Intentional underdose [Recovered/Resolved]
  - Incorrect route of product administration [Recovered/Resolved]
  - Injection site necrosis [Recovered/Resolved]
  - Drug withdrawal syndrome [Recovered/Resolved]
  - Tachycardia [Unknown]

NARRATIVE: CASE EVENT DATE: 2020
